FAERS Safety Report 21536574 (Version 3)
Quarter: 2022Q4

REPORT INFORMATION
  Report Type: Spontaneous
  Country: US (occurrence: US)
  Receive Date: 20221101
  Receipt Date: 20221207
  Transmission Date: 20230113
  Serious: No
  Sender: FDA-Public Use
  Company Number: US-BAYER-2022A147851

PATIENT
  Age: 40 Year
  Sex: Female
  Weight: 80.272 kg

DRUGS (1)
  1. MIRENA [Suspect]
     Active Substance: LEVONORGESTREL
     Indication: Contraception
     Dosage: 20?G/DAY
     Route: 015
     Dates: start: 20180308, end: 20221005

REACTIONS (2)
  - Menometrorrhagia [None]
  - Uterine leiomyoma [None]
